FAERS Safety Report 8238322-9 (Version None)
Quarter: 2012Q1

REPORT INFORMATION
  Report Type: 
  Country: None (occurrence: None)
  Receive Date: 20120327
  Receipt Date: 20120319
  Transmission Date: 20120608
  Serious: Yes (Death)
  Sender: FDA-Public Use
  Company Number: JP-AMGEN-JPNCT2011069036

PATIENT
  Age: 87 Year
  Sex: Male
  Weight: 64 kg

DRUGS (3)
  1. TS 1 [Concomitant]
     Indication: COLORECTAL CANCER
     Dosage: 50 MG, BID
     Route: 048
     Dates: start: 20110816, end: 20111206
  2. IRINOTECAN HCL [Suspect]
     Indication: COLORECTAL CANCER
     Dosage: 100 MG, Q2WK
     Route: 041
     Dates: start: 20110816, end: 20111206
  3. PANITUMUMAB [Suspect]
     Indication: COLORECTAL CANCER
     Dosage: 390 MG, Q2WK
     Route: 041
     Dates: start: 20110816, end: 20111206

REACTIONS (3)
  - DECREASED APPETITE [None]
  - MALAISE [None]
  - INTERSTITIAL LUNG DISEASE [None]
